FAERS Safety Report 5276403-2 (Version None)
Quarter: 2007Q1

REPORT INFORMATION
  Report Type: 
  Country: None (occurrence: None)
  Receive Date: 20061213
  Receipt Date: 20040225
  Transmission Date: 20070707
  Serious: No
  Sender: FDA-Public Use
  Company Number: 2004UW00671

PATIENT
  Age: 50 Year

DRUGS (5)
  1. SEROQUEL [Suspect]
     Indication: AGITATION
     Dosage: 300 MG QID PO
     Route: 048
  2. FERROUS SULFATE TAB [Suspect]
  3. FLECAINIDE ACETATE [Concomitant]
  4. DILTIAZEM [Concomitant]
  5. LISINOPRIL [Concomitant]

REACTIONS (1)
  - INTESTINAL OBSTRUCTION [None]
